FAERS Safety Report 24232449 (Version 6)
Quarter: 2024Q4

REPORT INFORMATION
  Report Type: Spontaneous
  Country: JP (occurrence: JP)
  Receive Date: 20240821
  Receipt Date: 20241107
  Transmission Date: 20250115
  Serious: Yes (Life-Threatening, Hospitalization, Other)
  Sender: MERZ
  Company Number: JP-teijin-202403112_XEO_P_1

PATIENT

DRUGS (5)
  1. XEOMIN [Suspect]
     Active Substance: INCOBOTULINUMTOXINA
     Indication: Muscle spasticity
     Dosage: 270 INTERNATIONAL UNIT
     Route: 030
     Dates: start: 20230111, end: 20230111
  2. XEOMIN [Suspect]
     Active Substance: INCOBOTULINUMTOXINA
     Dosage: 400 INTERNATIONAL UNIT
     Route: 030
     Dates: start: 20231011, end: 20231011
  3. XEOMIN [Suspect]
     Active Substance: INCOBOTULINUMTOXINA
     Dosage: 400 INTERNATIONAL UNIT
     Route: 030
     Dates: start: 20240117, end: 20240117
  4. XEOMIN [Suspect]
     Active Substance: INCOBOTULINUMTOXINA
     Dosage: 400 INTERNATIONAL UNIT
     Route: 030
     Dates: start: 20240417, end: 20240417
  5. XEOMIN [Suspect]
     Active Substance: INCOBOTULINUMTOXINA
     Dosage: 400 INTERNATIONAL UNIT
     Route: 030
     Dates: start: 20240717, end: 20240717

REACTIONS (7)
  - Respiratory failure [Recovering/Resolving]
  - Restrictive pulmonary disease [Recovering/Resolving]
  - Atrial fibrillation [Recovered/Resolved]
  - Dysuria [Recovering/Resolving]
  - Muscular weakness [Recovering/Resolving]
  - Injection site discomfort [Recovering/Resolving]
  - Off label use [Unknown]

NARRATIVE: CASE EVENT DATE: 20230111
